FAERS Safety Report 16765207 (Version 1)
Quarter: 2019Q3

REPORT INFORMATION
  Report Type: Spontaneous
  Country: GB (occurrence: GB)
  Receive Date: 20190903
  Receipt Date: 20190903
  Transmission Date: 20191005
  Serious: Yes (Hospitalization, Other)
  Sender: FDA-Public Use
  Company Number: GB-LUPIN PHARMACEUTICALS INC.-2019-05590

PATIENT
  Age: 25 Year
  Sex: Male

DRUGS (6)
  1. QUETIAPINE FUMARATE. [Suspect]
     Active Substance: QUETIAPINE FUMARATE
     Dosage: 200 MILLIGRAM, AT NIGHT
     Route: 065
  2. QUETIAPINE FUMARATE. [Suspect]
     Active Substance: QUETIAPINE FUMARATE
     Indication: PSYCHOTIC DISORDER
     Dosage: UNK
     Route: 065
  3. QUETIAPINE FUMARATE. [Suspect]
     Active Substance: QUETIAPINE FUMARATE
     Dosage: UNK (DOSE WAS PROGRESSIVELY INCREASED OVER 2 MONTHS AND CONVERTED TO MODIFIED RELEASE FORM)
     Route: 065
  4. IMIPRAMINE [Suspect]
     Active Substance: IMIPRAMINE
     Dosage: 50 MILLIGRAM, AT NIGHT
     Route: 065
  5. QUETIAPINE FUMARATE. [Suspect]
     Active Substance: QUETIAPINE FUMARATE
     Dosage: 600 MILLIGRAM, AT NIGHT
     Route: 065
  6. IMIPRAMINE [Suspect]
     Active Substance: IMIPRAMINE
     Indication: RETROGRADE EJACULATION
     Dosage: 25 MILLIGRAM, AT NIGHT
     Route: 065

REACTIONS (2)
  - Retrograde ejaculation [Recovering/Resolving]
  - Constipation [Unknown]
